FAERS Safety Report 20955394 (Version 1)
Quarter: 2022Q2

REPORT INFORMATION
  Report Type: Spontaneous
  Country: US (occurrence: None)
  Receive Date: 20220613
  Receipt Date: 20220613
  Transmission Date: 20220721
  Serious: Yes (Hospitalization)
  Sender: FDA-Public Use
  Company Number: None

PATIENT
  Age: 62 Year
  Sex: Female

DRUGS (18)
  1. REBIF [Suspect]
     Active Substance: INTERFERON BETA-1A
     Indication: Multiple sclerosis
     Dosage: OTHER QUANTITY : 44 MCG/0.5ML;?FREQUENCY : 3 TIMES A WEEK;?INJECT ONE SYRINGE UNDER THE SKIN THREE T
     Route: 058
     Dates: start: 20150703
  2. CALCIUM [Concomitant]
     Active Substance: CALCIUM
  3. D2000 ULTRA STRENGTH [Concomitant]
  4. DILANTIN [Concomitant]
     Active Substance: PHENYTOIN
  5. FOLIC ACID [Concomitant]
     Active Substance: FOLIC ACID
  6. FUROSEMIDE [Concomitant]
     Active Substance: FUROSEMIDE
  7. LISINOPRIL [Concomitant]
     Active Substance: LISINOPRIL
  8. LOPRESS HCT [Concomitant]
  9. MAGNESIUM [Concomitant]
     Active Substance: MAGNESIUM
  10. METHADONE [Concomitant]
     Active Substance: METHADONE HYDROCHLORIDE
  11. METOPROLOL [Concomitant]
     Active Substance: METOPROLOL
  12. MORPHINE SULFATE [Concomitant]
     Active Substance: MORPHINE SULFATE
  13. DEVICE [Concomitant]
     Active Substance: DEVICE
  14. OYST-CAL [Concomitant]
  15. POTASSIMIN [Concomitant]
  16. PRENATAL TAB [Concomitant]
  17. TRAMADOL HCL [Concomitant]
     Active Substance: TRAMADOL HYDROCHLORIDE
  18. VITAMIN D [Concomitant]
     Active Substance: VITAMIN D NOS

REACTIONS (2)
  - Fall [None]
  - Hypoaesthesia [None]

NARRATIVE: CASE EVENT DATE: 20220523
